FAERS Safety Report 9318796 (Version 2)
Quarter: 2013Q3

REPORT INFORMATION
  Report Type: Spontaneous
  Country: JP (occurrence: None)
  Receive Date: 20130524
  Receipt Date: 20130724
  Transmission Date: 20140515
  Serious: Yes (Hospitalization)
  Sender: FDA-Public Use
  Company Number: TPA2013A04015

PATIENT
  Age: 73 Year
  Sex: Male

DRUGS (3)
  1. FEBURIC [Suspect]
     Indication: HYPERURICAEMIA
     Route: 048
     Dates: start: 20120718, end: 20120814
  2. LYRICA (PREGABALIN) [Concomitant]
  3. HUMALOG MIX (INSULIN LISPRO, INSULIN LISPRO PROTAMINE SUSPENSION) [Concomitant]

REACTIONS (4)
  - Lung disorder [None]
  - Pneumonia [None]
  - Pneumonia [None]
  - Eosinophilic pneumonia acute [None]
